FAERS Safety Report 24337864 (Version 2)
Quarter: 2024Q3

REPORT INFORMATION
  Report Type: Spontaneous
  Country: RU (occurrence: RU)
  Receive Date: 20240919
  Receipt Date: 20240924
  Transmission Date: 20241016
  Serious: Yes (Other)
  Sender: ROCHE
  Company Number: RU-ROCHE-10000085145

PATIENT
  Age: 60 Year
  Sex: Female

DRUGS (3)
  1. PERJETA [Suspect]
     Active Substance: PERTUZUMAB
     Indication: Breast cancer
     Route: 042
  2. TRASTUZUMAB [Suspect]
     Active Substance: TRASTUZUMAB
     Indication: Breast cancer
     Dosage: 6MG/KG (8MG/KG LOADING DOSE) IV ON DAY1, Q3W
     Route: 042
  3. DOCETAXEL [Suspect]
     Active Substance: DOCETAXEL\DOCETAXEL ANHYDROUS
     Indication: Breast cancer
     Dosage: 75MG/M2 IV ON DAY 1 Q3W, 6 CYCLES
     Route: 042

REACTIONS (3)
  - Thrombocytopenia [Unknown]
  - Transaminases increased [Unknown]
  - Pancreatitis chronic [Unknown]

NARRATIVE: CASE EVENT DATE: 20240601
